FAERS Safety Report 7767905-5 (Version None)
Quarter: 2011Q3

REPORT INFORMATION
  Report Type: 
  Country: None (occurrence: None)
  Receive Date: 20110922
  Receipt Date: 20101006
  Transmission Date: 20111222
  Serious: No
  Sender: FDA-Public Use
  Company Number: US-ASTRAZENECA-2010SE47428

PATIENT
  Sex: Male

DRUGS (1)
  1. SEROQUEL [Suspect]
     Indication: SLEEP DISORDER
     Route: 048
     Dates: start: 20090801, end: 20100801

REACTIONS (7)
  - FEELING ABNORMAL [None]
  - HEAD TITUBATION [None]
  - HEADACHE [None]
  - CRYING [None]
  - TREMOR [None]
  - JOINT STIFFNESS [None]
  - LOSS OF EMPLOYMENT [None]
